FAERS Safety Report 7944859-X (Version None)
Quarter: 2011Q4

REPORT INFORMATION
  Report Type: 
  Country: None (occurrence: None)
  Receive Date: 20111129
  Receipt Date: 20110208
  Transmission Date: 20120403
  Serious: No
  Sender: FDA-Public Use
  Company Number: US-MYLANLABS-2011S1002950

PATIENT
  Age: 54 Year
  Sex: Male

DRUGS (2)
  1. AMLODIPINE BESYLATE [Suspect]
     Indication: BLOOD PRESSURE INCREASED
     Route: 048
     Dates: start: 20110114, end: 20110101
  2. AMLODIPINE BESYLATE [Suspect]
     Route: 048
     Dates: start: 20110207

REACTIONS (5)
  - NAUSEA [None]
  - FLATULENCE [None]
  - ERUCTATION [None]
  - DECREASED APPETITE [None]
  - DIARRHOEA [None]
